FAERS Safety Report 23226717 (Version 1)
Quarter: 2023Q4

REPORT INFORMATION
  Report Type: Spontaneous
  Country: PE (occurrence: PE)
  Receive Date: 20231124
  Receipt Date: 20231124
  Transmission Date: 20240109
  Serious: Yes (Other)
  Sender: FDA-Public Use
  Company Number: PE-SUN PHARMACEUTICAL INDUSTRIES LTD-2023RR-419840

PATIENT
  Age: 44 Year
  Sex: Female

DRUGS (6)
  1. GABAPENTIN [Suspect]
     Active Substance: GABAPENTIN
     Indication: New daily persistent headache
     Dosage: 600 MILLIGRAM
     Route: 065
  2. DESVENLAFAXINE [Suspect]
     Active Substance: DESVENLAFAXINE
     Indication: New daily persistent headache
     Dosage: 100 MILLIGRAM
     Route: 065
  3. PROPRANOLOL [Suspect]
     Active Substance: PROPRANOLOL HYDROCHLORIDE
     Dosage: 40 MILLIGRAM
     Route: 065
  4. TOPIRAMATE [Suspect]
     Active Substance: TOPIRAMATE
     Indication: New daily persistent headache
     Dosage: 50 MILLIGRAM
     Route: 065
  5. KETOROLAC [Suspect]
     Active Substance: KETOROLAC TROMETHAMINE
     Indication: New daily persistent headache
     Dosage: 30 MILLIGRAM
     Route: 065
  6. SUMATRIPTAN [Suspect]
     Active Substance: SUMATRIPTAN
     Indication: New daily persistent headache
     Dosage: 100 MILLIGRAM
     Route: 065

REACTIONS (2)
  - Off label use [Unknown]
  - Therapeutic product effect incomplete [Unknown]
